FAERS Safety Report 14240374 (Version 2)
Quarter: 2017Q4

REPORT INFORMATION
  Report Type: Spontaneous
  Country: US (occurrence: US)
  Receive Date: 20171130
  Receipt Date: 20171205
  Transmission Date: 20180321
  Serious: Yes (Hospitalization)
  Sender: FDA-Public Use
  Company Number: US-PFIZER INC-2016444844

PATIENT
  Age: 69 Year
  Sex: Female
  Weight: 77.11 kg

DRUGS (17)
  1. MAGNESIUM OXIDE. [Concomitant]
     Active Substance: MAGNESIUM OXIDE
     Dosage: 500 MG, DAILY
     Route: 048
  2. ATENOLOL. [Concomitant]
     Active Substance: ATENOLOL
  3. LORAZEPAM. [Concomitant]
     Active Substance: LORAZEPAM
     Dosage: 3 MG, 1X/DAY (TAKE 3 TABLETS AT BEDTIME)
     Route: 048
  4. SIMVASTATIN. [Concomitant]
     Active Substance: SIMVASTATIN
     Indication: LIPIDS ABNORMAL
     Dosage: 20 MG, DAILY
     Route: 048
  5. METFORMIN [Concomitant]
     Active Substance: METFORMIN HYDROCHLORIDE
     Dosage: UNK
  6. ATENOLOL AND CHLORTHALIDONE [Concomitant]
     Active Substance: ATENOLOL\CHLORTHALIDONE
     Indication: HYPERTENSION
     Dosage: 1 DF, DAILY [ATENOLOL:50 MG, CHLORTHALIDONE:25 MG]
     Route: 048
  7. METFORMIN HCL [Concomitant]
     Active Substance: METFORMIN HYDROCHLORIDE
     Indication: DIABETES MELLITUS
     Dosage: 250 MG, DAILY
     Route: 048
  8. ZOFRAN [Concomitant]
     Active Substance: ONDANSETRON HYDROCHLORIDE
     Indication: NAUSEA
     Dosage: 4 MG, AS NEEDED
     Route: 048
  9. LYRICA [Suspect]
     Active Substance: PREGABALIN
     Indication: BACK PAIN
     Dosage: 300 MG, 2X/DAY
     Route: 048
     Dates: start: 2016
  10. VITAMIN D [Concomitant]
     Active Substance: CHOLECALCIFEROL
     Dosage: 2000 IU, DAILY
     Route: 048
  11. LEVOTHYROXINE. [Concomitant]
     Active Substance: LEVOTHYROXINE
  12. LEVOTHYROXINE SODIUM. [Concomitant]
     Active Substance: LEVOTHYROXINE SODIUM
     Indication: HYPOTHYROIDISM
     Dosage: 88 UG, DAILY [ON AN EMPTY STOMACH]
     Route: 048
  13. LYRICA [Suspect]
     Active Substance: PREGABALIN
     Indication: PAIN
  14. ASPIRIN EC [Concomitant]
     Active Substance: ASPIRIN
     Dosage: 81 MG, DAILY [TAKE 1 TABLET BY MOUTH DAILY WITH FOOD. HOLD FOR GI UPSET]
     Route: 048
  15. ZOFRAN [Concomitant]
     Active Substance: ONDANSETRON HYDROCHLORIDE
     Indication: VOMITING
  16. NYSTATIN. [Concomitant]
     Active Substance: NYSTATIN
     Dosage: 5 ML, 4X/DAY [5 CC SWISH AND SWALLOW FOUR TIMES DAILY X 7 DAYS]
     Route: 048
  17. BACLOFEN. [Concomitant]
     Active Substance: BACLOFEN
     Indication: MUSCLE SPASMS
     Dosage: 10 MG, AS NEEDED (TAKE 1 TABLET BY MOUTH AT BEDTIME AND EVERY 8 HOURS AS NEEDED)
     Route: 048

REACTIONS (3)
  - Candida infection [Unknown]
  - Malaise [Unknown]
  - Urinary tract infection [Unknown]

NARRATIVE: CASE EVENT DATE: 201711
